FAERS Safety Report 5882372-4 (Version None)
Quarter: 2008Q3

REPORT INFORMATION
  Report Type: 
  Country: None (occurrence: None)
  Receive Date: 20080913
  Receipt Date: 20080801
  Transmission Date: 20090109
  Serious: No
  Sender: FDA-Public Use
  Company Number: US-ABBOTT-08P-163-0468398-00

PATIENT
  Sex: Female
  Weight: 79.45 kg

DRUGS (5)
  1. HUMIRA [Suspect]
     Indication: RHEUMATOID ARTHRITIS
     Route: 058
     Dates: start: 20071201
  2. VENLAFAXINE HCL [Concomitant]
     Indication: DEPRESSION
     Dosage: DAILY
     Route: 048
  3. ESOMEPRAZOLE MAGNESIUM [Concomitant]
     Indication: GASTROOESOPHAGEAL REFLUX DISEASE
     Route: 048
  4. TRAZODONE HCL [Concomitant]
     Indication: DEPRESSION
     Route: 048
  5. LEVOTHYROXINE SODIUM [Concomitant]
     Indication: HYPOTHYROIDISM
     Dosage: DAILY
     Route: 048

REACTIONS (6)
  - ACCIDENTAL EXPOSURE [None]
  - ANTI-SS-A ANTIBODY POSITIVE [None]
  - ANTI-SS-B ANTIBODY POSITIVE [None]
  - INFLAMMATION [None]
  - LUNG DISORDER [None]
  - PAIN [None]
